FAERS Safety Report 26166240 (Version 1)
Quarter: 2025Q4

REPORT INFORMATION
  Report Type: Spontaneous
  Country: CN (occurrence: CN)
  Receive Date: 20251216
  Receipt Date: 20251216
  Transmission Date: 20260118
  Serious: Yes (Life-Threatening, Hospitalization, Other)
  Sender: PHARMOBEDIENT CONSULTING, LLC
  Company Number: CN-Pharmobedient-000639

PATIENT
  Age: 37 Year
  Sex: Female

DRUGS (3)
  1. ZONISAMIDE [Suspect]
     Active Substance: ZONISAMIDE
     Indication: Seizure
     Dosage: FIRST WEEK
  2. LEVETIRACETAM [Concomitant]
     Active Substance: LEVETIRACETAM
     Indication: Seizure
  3. ZONISAMIDE [Suspect]
     Active Substance: ZONISAMIDE
     Indication: Seizure
     Dosage: SECOND WEEK

REACTIONS (3)
  - Drug reaction with eosinophilia and systemic symptoms [Recovering/Resolving]
  - Stevens-Johnson syndrome [Recovering/Resolving]
  - Hepatic function abnormal [Recovering/Resolving]
